FAERS Safety Report 25631870 (Version 3)
Quarter: 2025Q4

REPORT INFORMATION
  Report Type: Spontaneous
  Country: US (occurrence: US)
  Receive Date: 20250801
  Receipt Date: 20251231
  Transmission Date: 20260117
  Serious: Yes (Hospitalization, Other)
  Sender: EDGEWELL PERSONAL CARE BRANDS
  Company Number: US-Edgewell Personal Care, LLC-2181640

PATIENT
  Age: 27 Year
  Sex: Female
  Weight: 158.7 kg

DRUGS (1)
  1. BANANA BOAT (AVOBENZONE\HOMOSALATE\OCTISALATE\OCTOCRYLENE) [Suspect]
     Active Substance: AVOBENZONE\HOMOSALATE\OCTISALATE\OCTOCRYLENE
     Indication: Prophylaxis against solar radiation
     Route: 048
     Dates: start: 20250712, end: 20250712

REACTIONS (7)
  - Pain [Recovered/Resolved]
  - Cellulitis [Recovered/Resolved]
  - Infection [Recovered/Resolved]
  - Burns second degree [Recovered/Resolved]
  - Skin exfoliation [Recovered/Resolved]
  - Blister [Recovered/Resolved]
  - Sunburn [Recovered/Resolved]

NARRATIVE: CASE EVENT DATE: 20250712
